FAERS Safety Report 17794445 (Version 3)
Quarter: 2020Q2

REPORT INFORMATION
  Report Type: Report from Study
  Country: US (occurrence: US)
  Receive Date: 20200515
  Receipt Date: 20200617
  Transmission Date: 20200714
  Serious: Yes (Hospitalization, Other)
  Sender: FDA-Public Use
  Company Number: US-GLAXOSMITHKLINE-US2020GSK079302

PATIENT
  Age: 58 Year
  Sex: Female
  Weight: 130.8 kg

DRUGS (4)
  1. DOSTARLIMAB [Suspect]
     Active Substance: DOSTARLIMAB
     Dosage: 500 MG
     Route: 042
     Dates: start: 20200515, end: 20200515
  2. NIRAPARIB [Suspect]
     Active Substance: NIRAPARIB
     Indication: OVARIAN CANCER
     Dosage: 300 MG
     Route: 048
     Dates: start: 20200403, end: 20200514
  3. DOSTARLIMAB [Suspect]
     Active Substance: DOSTARLIMAB
     Indication: OVARIAN CANCER
     Dosage: 500 MG
     Route: 042
     Dates: start: 20200403, end: 20200403
  4. DOSTARLIMAB [Suspect]
     Active Substance: DOSTARLIMAB
     Dosage: 500 MG
     Route: 042
     Dates: start: 20200424, end: 20200424

REACTIONS (2)
  - Embolism [Not Recovered/Not Resolved]
  - Pleural effusion [Unknown]

NARRATIVE: CASE EVENT DATE: 20200531
